FAERS Safety Report 9789227 (Version 1)
Quarter: 2013Q4

REPORT INFORMATION
  Report Type: Report from Study
  Country: US (occurrence: US)
  Receive Date: 20131230
  Receipt Date: 20131230
  Transmission Date: 20140711
  Serious: Yes (Other)
  Sender: FDA-Public Use
  Company Number: US-BAXTER-2013BAX052798

PATIENT
  Age: 36 Year
  Sex: Male

DRUGS (2)
  1. GAMMAGARD LIQUID [Suspect]
     Indication: PRODUCT USED FOR UNKNOWN INDICATION
     Route: 058
  2. GAMMAGARD LIQUID [Suspect]
     Route: 042

REACTIONS (4)
  - Drug effect decreased [Unknown]
  - Infection [Unknown]
  - Infection [Unknown]
  - Drug effect decreased [Unknown]
